FAERS Safety Report 10509934 (Version 3)
Quarter: 2015Q1

REPORT INFORMATION
  Report Type: Not Available
  Country: FR (occurrence: FR)
  Receive Date: 20141010
  Receipt Date: 20150320
  Transmission Date: 20150720
  Serious: Yes (Hospitalization)
  Sender: FDA-Public Use
  Company Number: FR-BEH-2014045413

PATIENT
  Age: 61 Year
  Sex: Female

DRUGS (12)
  1. ASMELOR 12 [Concomitant]
  2. LYRICA 90 [Concomitant]
  3. GAVISCON [Concomitant]
     Active Substance: ALUMINUM HYDROXIDE\MAGNESIUM CARBONATE
  4. SERETIDE DISKUS 500/50?G [Concomitant]
  5. CONTRAMAL 1P100 [Concomitant]
  6. PLAQUENIL 200 [Concomitant]
  7. MONTELUKAST 10 [Concomitant]
  8. HIZENTRA [Suspect]
     Active Substance: HUMAN IMMUNOGLOBULIN G
  9. SPIRIVA [Concomitant]
     Active Substance: TIOTROPIUM BROMIDE MONOHYDRATE
  10. HIZENTRA [Suspect]
     Active Substance: HUMAN IMMUNOGLOBULIN G
  11. HIZENTRA [Suspect]
     Active Substance: HUMAN IMMUNOGLOBULIN G
     Route: 042
     Dates: start: 20140722, end: 20140722
  12. ESOMEPRAZOLE 40MG [Concomitant]
     Active Substance: ESOMEPRAZOLE

REACTIONS (9)
  - Arthralgia [Recovered/Resolved with Sequelae]
  - Pyrexia [Recovering/Resolving]
  - Arthritis [Recovering/Resolving]
  - Arthralgia [Recovering/Resolving]
  - General physical health deterioration [Recovering/Resolving]
  - Oedema peripheral [Recovering/Resolving]
  - Musculoskeletal disorder [Recovering/Resolving]
  - Thrombosis [Recovering/Resolving]
  - Pain in extremity [Recovering/Resolving]

NARRATIVE: CASE EVENT DATE: 20140820
